FAERS Safety Report 7327661-1 (Version None)
Quarter: 2011Q1

REPORT INFORMATION
  Report Type: 
  Country: None (occurrence: None)
  Receive Date: 20110303
  Receipt Date: 20091214
  Transmission Date: 20110831
  Serious: No
  Sender: FDA-Public Use
  Company Number: US-BAYER-200943735NA

PATIENT
  Sex: Female
  Weight: 59.545 kg

DRUGS (4)
  1. MIRENA [Suspect]
     Indication: CONTRACEPTION
     Dosage: 20 MCG/24HR, UNK
     Route: 015
     Dates: start: 20090701, end: 20091209
  2. SIMVASTATIN [Concomitant]
  3. MINOCYCLINE HCL [Concomitant]
  4. ZETIA [Concomitant]

REACTIONS (1)
  - DEVICE EXPULSION [None]
